FAERS Safety Report 8211035-5 (Version None)
Quarter: 2012Q1

REPORT INFORMATION
  Report Type: 
  Country: None (occurrence: None)
  Receive Date: 20120315
  Receipt Date: 20120306
  Transmission Date: 20120608
  Serious: Yes (Hospitalization)
  Sender: FDA-Public Use
  Company Number: PHHY2012VE019602

PATIENT
  Sex: Female

DRUGS (6)
  1. ASPIRIN [Concomitant]
     Dosage: 100 MG, QD
  2. EXFORGE [Concomitant]
     Indication: HYPERTENSION
     Dosage: VALSARTAN 160MG/ AMLODIPINE 5MG, QD
  3. ZOLEDRONOC ACID [Suspect]
     Indication: OSTEOPOROSIS
     Dosage: 5 MG, ONCE YEAR
     Route: 042
     Dates: start: 20111123
  4. VASTAREL [Concomitant]
     Dosage: 35 MG, BID
  5. LOVAZA [Concomitant]
  6. TRANGOREX [Concomitant]
     Dosage: 200 MG, QD

REACTIONS (7)
  - PAIN IN EXTREMITY [None]
  - ARTHRALGIA [None]
  - VOMITING [None]
  - AMOEBIASIS [None]
  - DIARRHOEA [None]
  - BONE PAIN [None]
  - PYREXIA [None]
